FAERS Safety Report 20877050 (Version 1)
Quarter: 2022Q2

REPORT INFORMATION
  Report Type: Spontaneous
  Country: US (occurrence: None)
  Receive Date: 20220526
  Receipt Date: 20220526
  Transmission Date: 20220721
  Serious: Yes (Other)
  Sender: FDA-Public Use
  Company Number: None

PATIENT
  Age: 47 Year
  Sex: Female

DRUGS (1)
  1. HUMIRA [Suspect]
     Active Substance: ADALIMUMAB
     Indication: Product used for unknown indication
     Dosage: OTHER FREQUENCY : OTHER;?
     Route: 058
     Dates: start: 20220520

REACTIONS (4)
  - Periorbital swelling [None]
  - Oedema [None]
  - Asthenopia [None]
  - Swelling face [None]

NARRATIVE: CASE EVENT DATE: 20220524
